FAERS Safety Report 8080379-2 (Version None)
Quarter: 2012Q1

REPORT INFORMATION
  Report Type: 
  Country: None (occurrence: None)
  Receive Date: 20120130
  Receipt Date: 20120120
  Transmission Date: 20120608
  Serious: Yes (Other)
  Sender: FDA-Public Use
  Company Number: FR-BRACCO-000752

PATIENT
  Age: 25 Year
  Sex: Male

DRUGS (1)
  1. MULTIHANCE [Suspect]
     Indication: NUCLEAR MAGNETIC RESONANCE IMAGING
     Route: 042
     Dates: start: 20120119, end: 20120119

REACTIONS (3)
  - URTICARIA [None]
  - ANGIOEDEMA [None]
  - THROAT IRRITATION [None]
